FAERS Safety Report 8057162 (Version 2)
Quarter: 2012Q4

REPORT INFORMATION
  Report Type: Report from Study
  Country: DE (occurrence: DE)
  Receive Date: 20110727
  Receipt Date: 20121002
  Transmission Date: 20130627
  Serious: Yes (Hospitalization)
  Sender: FDA-Public Use
  Company Number: DE-GLAXOSMITHKLINE-B0703527B

PATIENT
  Sex: Female
  Weight: 90 kg

DRUGS (5)
  1. TOPOTECAN [Suspect]
     Indication: OVARIAN CANCER RECURRENT
     Dosage: 2.61MG per day
     Route: 042
     Dates: start: 20110214, end: 20110617
  2. BLINDED TRIAL MEDICATION [Suspect]
     Indication: OVARIAN CANCER RECURRENT
     Route: 048
     Dates: start: 20110219, end: 20110627
  3. DARBEPOETIN ALFA [Concomitant]
  4. PEGFILGRASTIM [Concomitant]
  5. FILGRASTIM [Concomitant]

REACTIONS (2)
  - Vaginal haemorrhage [Recovered/Resolved]
  - Vaginal haemorrhage [Recovered/Resolved]
